FAERS Safety Report 7527726-5 (Version None)
Quarter: 2011Q2

REPORT INFORMATION
  Report Type: 
  Country: None (occurrence: None)
  Receive Date: 20110527
  Receipt Date: 20110516
  Transmission Date: 20111010
  Serious: Yes (Death)
  Sender: FDA-Public Use
  Company Number: JP-2011-10794

PATIENT

DRUGS (3)
  1. LASIX [Concomitant]
  2. SAMSCA [Suspect]
     Dosage: PARENTERAL
     Route: 051
  3. HANP (CARPERITIDE(GENETICAL RECOMBINATION)) [Concomitant]

REACTIONS (1)
  - DEATH [None]
